FAERS Safety Report 13076250 (Version 1)
Quarter: 2016Q4

REPORT INFORMATION
  Report Type: Report from Study
  Country: US (occurrence: US)
  Receive Date: 20161230
  Receipt Date: 20161230
  Transmission Date: 20170207
  Serious: Yes (Hospitalization, Other)
  Sender: FDA-Public Use
  Company Number: US-NOVOPROD-524863

PATIENT
  Age: 34 Year
  Sex: Male
  Weight: 104.31 kg

DRUGS (1)
  1. VICTOZA [Suspect]
     Active Substance: LIRAGLUTIDE
     Indication: TYPE 1 DIABETES MELLITUS
     Dosage: 1.8 MG, QD
     Route: 058
     Dates: start: 2015, end: 201610

REACTIONS (6)
  - Blood glucose increased [Unknown]
  - Autoimmune disorder [Unknown]
  - Product use issue [Recovered/Resolved]
  - Dermatitis allergic [Unknown]
  - Lymphoma [Unknown]
  - Blood lactic acid increased [Unknown]

NARRATIVE: CASE EVENT DATE: 2015
